FAERS Safety Report 23292622 (Version 7)
Quarter: 2024Q3

REPORT INFORMATION
  Report Type: Spontaneous
  Country: US (occurrence: US)
  Receive Date: 20231213
  Receipt Date: 20240724
  Transmission Date: 20241016
  Serious: Yes (Hospitalization, Other)
  Sender: SANOFI AVENTIS
  Company Number: US-SA-SAC20231211000657

PATIENT
  Age: 41 Year
  Sex: Female

DRUGS (2)
  1. DUPIXENT [Suspect]
     Active Substance: DUPILUMAB
     Indication: Asthma
     Dosage: 600 MG, 1X
     Route: 058
     Dates: start: 20211201, end: 20211201
  2. DUPIXENT [Suspect]
     Active Substance: DUPILUMAB
     Dosage: 300 MG, QOW
     Route: 058
     Dates: start: 20231215

REACTIONS (14)
  - Pulmonary oedema [Unknown]
  - Dyspnoea [Recovering/Resolving]
  - Cough [Unknown]
  - Chest discomfort [Unknown]
  - Drug effect less than expected [Unknown]
  - Bronchospasm [Recovering/Resolving]
  - Rhinovirus infection [Unknown]
  - Dysarthria [Recovering/Resolving]
  - Coronavirus test positive [Unknown]
  - Viral infection [Unknown]
  - Eosinophil count decreased [Unknown]
  - Hospitalisation [Unknown]
  - Asthma [Unknown]
  - Muscle spasms [Unknown]

NARRATIVE: CASE EVENT DATE: 20230101
